FAERS Safety Report 6236560-8 (Version None)
Quarter: 2009Q2

REPORT INFORMATION
  Report Type: 
  Country: None (occurrence: None)
  Receive Date: 20090619
  Receipt Date: 20090616
  Transmission Date: 20091009
  Serious: Yes (Hospitalization)
  Sender: FDA-Public Use
  Company Number: D0061924A

PATIENT

DRUGS (3)
  1. REQUIP [Suspect]
     Indication: PARKINSONISM
     Dosage: 18MG PER DAY
     Route: 065
     Dates: start: 20081101
  2. ISICOM [Suspect]
     Route: 065
  3. ENTACAPONE [Suspect]
     Route: 065

REACTIONS (1)
  - ON AND OFF PHENOMENON [None]
